FAERS Safety Report 6667061-0 (Version None)
Quarter: 2010Q2

REPORT INFORMATION
  Report Type: 
  Country: None (occurrence: None)
  Receive Date: 20100402
  Receipt Date: 20100402
  Transmission Date: 20101027
  Serious: Yes (Other)
  Sender: FDA-Public Use
  Company Number: None

PATIENT
  Age: 40 Year
  Sex: Male
  Weight: 99.7913 kg

DRUGS (3)
  1. KAPIDEX [Suspect]
     Indication: GASTRITIS
     Dosage: 1 DAILY PO
     Route: 048
     Dates: start: 20100306, end: 20100320
  2. KAPIDEX [Suspect]
     Indication: HERNIA
     Dosage: 1 DAILY PO
     Route: 048
     Dates: start: 20100306, end: 20100320
  3. KAPIDEX [Suspect]
     Indication: OESOPHAGITIS
     Dosage: 1 DAILY PO
     Route: 048
     Dates: start: 20100306, end: 20100320

REACTIONS (1)
  - ARRHYTHMIA [None]
